FAERS Safety Report 14077975 (Version 1)
Quarter: 2017Q4

REPORT INFORMATION
  Report Type: Spontaneous
  Country: GB (occurrence: GB)
  Receive Date: 20171012
  Receipt Date: 20171012
  Transmission Date: 20180321
  Serious: Yes (Other)
  Sender: FDA-Public Use
  Company Number: GB-AUROBINDO-AUR-APL-2017-41530

PATIENT
  Age: 31 Year
  Sex: Female
  Weight: 58.96 kg

DRUGS (3)
  1. CITALOPRAM [Suspect]
     Active Substance: CITALOPRAM HYDROBROMIDE
     Indication: STRESS
     Dosage: 20 MG, UNK
     Route: 048
     Dates: start: 20170919, end: 20170919
  2. BREVINOR [Concomitant]
     Active Substance: ETHINYL ESTRADIOL\NORETHINDRONE
     Indication: PRODUCT USED FOR UNKNOWN INDICATION
  3. CANESTEN [Concomitant]
     Active Substance: CLOTRIMAZOLE
     Indication: BACTERIAL VAGINOSIS

REACTIONS (24)
  - Diarrhoea [Recovering/Resolving]
  - Vomiting [Recovering/Resolving]
  - Head discomfort [Recovering/Resolving]
  - Headache [Recovering/Resolving]
  - Muscular weakness [Recovering/Resolving]
  - Tearfulness [Recovering/Resolving]
  - Dissociation [Recovering/Resolving]
  - Visual impairment [Recovering/Resolving]
  - Panic disorder [Recovering/Resolving]
  - Abdominal discomfort [Recovering/Resolving]
  - Emotional disorder [Recovering/Resolving]
  - Hypervigilance [Recovering/Resolving]
  - Feeling hot [Recovering/Resolving]
  - Depressed mood [Recovered/Resolved]
  - Dizziness [Recovering/Resolving]
  - Paranoia [Recovering/Resolving]
  - Ear discomfort [Recovering/Resolving]
  - Confusional state [Recovering/Resolving]
  - Condition aggravated [Recovered/Resolved]
  - Hallucination [Recovering/Resolving]
  - Disorientation [Recovering/Resolving]
  - Restlessness [Recovering/Resolving]
  - Dry mouth [Recovering/Resolving]
  - Hyperhidrosis [Recovering/Resolving]

NARRATIVE: CASE EVENT DATE: 20170919
